FAERS Safety Report 7572860-7 (Version None)
Quarter: 2011Q2

REPORT INFORMATION
  Report Type: 
  Country: None (occurrence: None)
  Receive Date: 20110627
  Receipt Date: 20110614
  Transmission Date: 20111010
  Serious: Yes (Hospitalization, Other)
  Sender: FDA-Public Use
  Company Number: US-ELI_LILLY_AND_COMPANY-US201106004252

PATIENT
  Sex: Male

DRUGS (6)
  1. LEVEMIR [Concomitant]
  2. NOVOLOG [Concomitant]
  3. SYMLIN [Concomitant]
  4. LISINOPRIL [Concomitant]
  5. CELEXA [Concomitant]
  6. CYMBALTA [Suspect]
     Indication: DIABETIC NEUROPATHY
     Dosage: 60 MG, QD
     Dates: start: 20100601

REACTIONS (15)
  - HYPOTENSION [None]
  - TREMOR [None]
  - BLOOD SODIUM DECREASED [None]
  - AGITATION [None]
  - DEPRESSED MOOD [None]
  - AGGRESSION [None]
  - FALL [None]
  - DYSKINESIA [None]
  - THINKING ABNORMAL [None]
  - INSOMNIA [None]
  - SUICIDAL IDEATION [None]
  - BLOOD GLUCOSE DECREASED [None]
  - ACTIVITIES OF DAILY LIVING IMPAIRED [None]
  - LOSS OF CONSCIOUSNESS [None]
  - SUICIDE ATTEMPT [None]
